FAERS Safety Report 13561878 (Version 1)
Quarter: 2017Q2

REPORT INFORMATION
  Report Type: Report from Study
  Country: KR (occurrence: KR)
  Receive Date: 20170518
  Receipt Date: 20170518
  Transmission Date: 20170830
  Serious: Yes (Hospitalization)
  Sender: FDA-Public Use
  Company Number: KR-GILEAD-2017-0273155

PATIENT
  Age: 41 Year
  Sex: Female

DRUGS (10)
  1. CODEINE [Concomitant]
     Active Substance: CODEINE
     Indication: UPPER RESPIRATORY TRACT INFECTION
     Dosage: 20 MG, TID
     Route: 048
     Dates: start: 20170215, end: 20170220
  2. PENIRAMIN [Concomitant]
     Indication: UPPER RESPIRATORY TRACT INFECTION
     Dosage: 2 MG, TID
     Route: 048
     Dates: start: 20170215, end: 20170220
  3. LASIX [Concomitant]
     Active Substance: FUROSEMIDE
     Indication: PULMONARY ARTERIAL HYPERTENSION
     Dosage: 20 MG, QD
     Route: 048
     Dates: start: 20151210
  4. AMBRISENTAN [Suspect]
     Active Substance: AMBRISENTAN
     Dosage: 10 MG, QD
     Route: 048
     Dates: start: 20150624
  5. ALDACTONE [Concomitant]
     Active Substance: SPIRONOLACTONE
     Indication: PULMONARY ARTERIAL HYPERTENSION
     Dosage: 12.5 MG, QD
     Route: 048
     Dates: start: 20151210
  6. BISOLVON [Concomitant]
     Active Substance: BROMHEXINE HYDROCHLORIDE
     Indication: UPPER RESPIRATORY TRACT INFECTION
     Dosage: 8 MG, TID
     Route: 048
     Dates: start: 20170215, end: 20170220
  7. AMBRISENTAN [Suspect]
     Active Substance: AMBRISENTAN
     Indication: PULMONARY ARTERIAL HYPERTENSION
     Dosage: 5 MG, QD
     Route: 048
     Dates: start: 20120511, end: 20150623
  8. SILDENAFIL. [Concomitant]
     Active Substance: SILDENAFIL
     Indication: PULMONARY ARTERIAL HYPERTENSION
     Dosage: 20 MG, TID
     Route: 048
     Dates: start: 20151203
  9. TYLENOL ER [Concomitant]
     Active Substance: ACETAMINOPHEN
     Indication: UPPER RESPIRATORY TRACT INFECTION
     Dosage: 650 MG, TID
     Route: 048
     Dates: start: 20170215, end: 20170220
  10. BANAN [Concomitant]
     Active Substance: CEFPODOXIME PROXETIL
     Indication: UPPER RESPIRATORY TRACT INFECTION
     Dosage: 100 MG, BID
     Route: 048
     Dates: start: 20170215, end: 20170220

REACTIONS (2)
  - Dyspnoea [Recovered/Resolved]
  - Pyrexia [Unknown]

NARRATIVE: CASE EVENT DATE: 20151202
